FAERS Safety Report 24246242 (Version 1)
Quarter: 2024Q3

REPORT INFORMATION
  Report Type: Other
  Country: DE (occurrence: DE)
  Receive Date: 20240825
  Receipt Date: 20240825
  Transmission Date: 20241016
  Serious: Yes (Other)
  Sender: GLENMARK
  Company Number: None

PATIENT

DRUGS (4)
  1. EZETIMIBE\SIMVASTATIN [Suspect]
     Active Substance: EZETIMIBE\SIMVASTATIN
     Indication: Blood cholesterol increased
     Dosage: 1 DOSAGE FORM, OD
     Route: 065
     Dates: start: 20221001, end: 202405
  2. ASPIRIN [Suspect]
     Active Substance: ASPIRIN
     Indication: Anticoagulant therapy
     Dosage: 100 MILLIGRAM, OD, 0-1-0
     Route: 065
     Dates: start: 2013
  3. TORSEMIDE [Suspect]
     Active Substance: TORSEMIDE
     Indication: Pulmonary oedema
     Dosage: 10 MILLIGRAM, OD, 1 - 0 - 0
     Route: 065
     Dates: start: 2013
  4. TORSEMIDE [Suspect]
     Active Substance: TORSEMIDE
     Indication: Oedema peripheral

REACTIONS (1)
  - Hallucination [Unknown]
